FAERS Safety Report 16329172 (Version 4)
Quarter: 2020Q1

REPORT INFORMATION
  Report Type: Spontaneous
  Country: US (occurrence: US)
  Receive Date: 20190520
  Receipt Date: 20200219
  Transmission Date: 20200409
  Serious: Yes (Hospitalization, Other)
  Sender: FDA-Public Use
  Company Number: US-BIOGEN-2019BI00738387

PATIENT
  Age: 63 Year
  Sex: Male

DRUGS (3)
  1. TECFIDERA [Suspect]
     Active Substance: DIMETHYL FUMARATE
     Indication: MULTIPLE SCLEROSIS
     Route: 065
     Dates: start: 20150121, end: 20150201
  2. GILENYA [Suspect]
     Active Substance: FINGOLIMOD HYDROCHLORIDE
     Indication: MULTIPLE SCLEROSIS
     Route: 065
     Dates: start: 201505, end: 20190827
  3. TECFIDERA [Suspect]
     Active Substance: DIMETHYL FUMARATE
     Route: 048
     Dates: start: 201502, end: 201503

REACTIONS (4)
  - Peripheral swelling [Unknown]
  - Basal cell carcinoma [Recovered/Resolved]
  - White blood cell count decreased [Not Recovered/Not Resolved]
  - Malignant melanoma stage III [Recovered/Resolved]

NARRATIVE: CASE EVENT DATE: 20180801
